FAERS Safety Report 5523021-4 (Version None)
Quarter: 2007Q4

REPORT INFORMATION
  Report Type: 
  Country: None (occurrence: None)
  Receive Date: 20071121
  Receipt Date: 20071112
  Transmission Date: 20080405
  Serious: Yes (Life-Threatening, Hospitalization)
  Sender: FDA-Public Use
  Company Number: US-KINGPHARMUSA00001-K200601630

PATIENT

DRUGS (11)
  1. ALTACE [Suspect]
     Indication: BLOOD PRESSURE
     Dosage: 10 MG, QD
     Route: 048
     Dates: start: 20000101, end: 20060701
  2. CRESTOR [Suspect]
     Indication: BLOOD CHOLESTEROL INCREASED
     Dosage: 20 MG, QD
     Route: 048
     Dates: start: 20010101, end: 20061203
  3. ASPIRIN [Concomitant]
     Indication: CARDIAC DISORDER
     Dosage: 81 MG, UNK
     Route: 048
  4. MULTI-VITAMINS [Concomitant]
     Indication: VITAMIN SUPPLEMENTATION
     Dosage: 1 TABLET, QD
     Route: 048
  5. CALCIUM CITRATE W/VITAMIN D NOS [Concomitant]
     Indication: VITAMIN SUPPLEMENTATION
     Dosage: 250 MG, QD
     Route: 048
  6. HYDRODIURIL [Concomitant]
     Indication: BLOOD PRESSURE
     Dosage: 25 MG, UNK
     Route: 048
  7. PLAVIX [Concomitant]
     Dosage: UNK, QD
  8. ADALAT CC [Concomitant]
     Dosage: 30 MG, QD
     Route: 048
  9. DOXEPIN HCL [Concomitant]
     Dosage: 10 MG, BID
     Route: 048
  10. EPIPEN [Concomitant]
     Indication: HYPERSENSITIVITY
     Dosage: UNK, PRN
     Route: 030
     Dates: start: 20060808
  11. CRESTOR [Concomitant]
     Dosage: 20 MG, UNK
     Route: 048
     Dates: start: 20070515

REACTIONS (6)
  - ANGIOEDEMA [None]
  - DYSPHONIA [None]
  - FACE OEDEMA [None]
  - PHARYNGEAL OEDEMA [None]
  - SWOLLEN TONGUE [None]
  - UNEVALUABLE EVENT [None]
